FAERS Safety Report 9184228 (Version 4)
Quarter: 2014Q1

REPORT INFORMATION
  Report Type: Report from Study
  Country: NL (occurrence: NL)
  Receive Date: 20130322
  Receipt Date: 20140130
  Transmission Date: 20141002
  Serious: Yes (Hospitalization, Other)
  Sender: FDA-Public Use
  Company Number: NL-ROCHE-1205597

PATIENT
  Age: 60 Year
  Sex: Female
  Weight: 72 kg

DRUGS (5)
  1. TOCILIZUMAB [Suspect]
     Indication: RHEUMATOID ARTHRITIS
     Route: 042
     Dates: start: 20111013
  2. TOCILIZUMAB [Suspect]
     Route: 042
     Dates: start: 20130122, end: 20130219
  3. TOCILIZUMAB [Suspect]
     Route: 042
     Dates: start: 20130712
  4. TOCILIZUMAB [Suspect]
     Route: 042
     Dates: start: 20121221
  5. TOCILIZUMAB [Suspect]
     Route: 042
     Dates: start: 20121123

REACTIONS (3)
  - Cholecystitis [Unknown]
  - Cholelithiasis [Recovered/Resolved]
  - Hepatitis [Recovered/Resolved]
